FAERS Safety Report 15506376 (Version 1)
Quarter: 2018Q4

REPORT INFORMATION
  Report Type: Spontaneous
  Country: SE (occurrence: SE)
  Receive Date: 20181016
  Receipt Date: 20181016
  Transmission Date: 20190205
  Serious: Yes (Hospitalization, Disabling)
  Sender: FDA-Public Use
  Company Number: PHHY2018SE122384

PATIENT
  Age: 66 Year
  Sex: Female

DRUGS (4)
  1. PACLITAXEL. [Suspect]
     Active Substance: PACLITAXEL
     Dosage: 210 OT, OT DOSERING ^210^
     Route: 042
  2. CARBOPLATIN. [Suspect]
     Active Substance: CARBOPLATIN
     Dosage: 400 OT, OT
     Route: 042
  3. PACLITAXEL. [Suspect]
     Active Substance: PACLITAXEL
     Indication: MALIGNANT NEOPLASM OF UNKNOWN PRIMARY SITE
     Dosage: 280 UNK, UNK (5 KURER)
     Route: 042
  4. CARBOPLATIN. [Suspect]
     Active Substance: CARBOPLATIN
     Indication: MALIGNANT NEOPLASM OF UNKNOWN PRIMARY SITE
     Dosage: 500 OT, OT (DOSERING 500, (5 KURER)
     Route: 042

REACTIONS (1)
  - Chronic obstructive pulmonary disease [Not Recovered/Not Resolved]

NARRATIVE: CASE EVENT DATE: 20160730
